FAERS Safety Report 23093224 (Version 1)
Quarter: 2023Q4

REPORT INFORMATION
  Report Type: Spontaneous
  Country: BR (occurrence: BR)
  Receive Date: 20231022
  Receipt Date: 20231022
  Transmission Date: 20240110
  Serious: Yes (Other)
  Sender: FDA-Public Use
  Company Number: BR-002147023-NVSC2022BR276783

PATIENT
  Age: 37 Year
  Sex: Female

DRUGS (4)
  1. ANASTROZOLE [Suspect]
     Active Substance: ANASTROZOLE
     Indication: Product used for unknown indication
     Dosage: UNK
     Route: 065
  2. KISQALI [Suspect]
     Active Substance: RIBOCICLIB
     Dosage: 2 DOSAGE FORM, TABLET
     Route: 065
  3. KISQALI [Suspect]
     Active Substance: RIBOCICLIB
     Indication: Breast cancer
     Dosage: UNK
     Route: 065
     Dates: start: 20221024
  4. KISQALI [Suspect]
     Active Substance: RIBOCICLIB
     Dosage: 3 DOSAGE FORM, TABLET
     Route: 065

REACTIONS (26)
  - Immunodeficiency [Recovering/Resolving]
  - Pain [Unknown]
  - Malaise [Unknown]
  - Anxiety [Recovering/Resolving]
  - Feeding disorder [Unknown]
  - Weight increased [Unknown]
  - Abdominal distension [Unknown]
  - Pruritus [Recovered/Resolved]
  - Oral pain [Recovering/Resolving]
  - Stomatitis [Unknown]
  - Asthenia [Recovered/Resolved]
  - Abdominal pain upper [Unknown]
  - Decreased immune responsiveness [Recovering/Resolving]
  - Weight decreased [Recovered/Resolved]
  - Dizziness [Recovering/Resolving]
  - Nausea [Unknown]
  - Chapped lips [Unknown]
  - Cyst [Unknown]
  - Paraesthesia [Unknown]
  - Toothache [Unknown]
  - Pain in extremity [Unknown]
  - Fall [Unknown]
  - Limb injury [Unknown]
  - Drug intolerance [Unknown]
  - Liver disorder [Recovering/Resolving]
  - Joint injury [Unknown]

NARRATIVE: CASE EVENT DATE: 20221101
